FAERS Safety Report 4263986-4 (Version None)
Quarter: 2004Q1

REPORT INFORMATION
  Report Type: 
  Country: None (occurrence: None)
  Receive Date: 20040106
  Receipt Date: 20040106
  Transmission Date: 20041129
  Serious: Yes (Hospitalization)
  Sender: FDA-Public Use
  Company Number: None

PATIENT
  Age: 68 Year
  Sex: Male
  Weight: 72.7 kg

DRUGS (2)
  1. DOXYCYCLINE [Suspect]
     Indication: CHRONIC OBSTRUCTIVE AIRWAYS DISEASE EXACERBATED
     Dosage: 100 MG IV
     Route: 042
     Dates: start: 20030822, end: 20030823
  2. DOXYCYCLINE [Suspect]
     Indication: PROPHYLAXIS
     Dosage: 100 MG IV
     Route: 042
     Dates: start: 20030822, end: 20030823

REACTIONS (1)
  - DYSPNOEA [None]
